FAERS Safety Report 14933596 (Version 2)
Quarter: 2018Q3

REPORT INFORMATION
  Report Type: Spontaneous
  Country: US (occurrence: US)
  Receive Date: 20180524
  Receipt Date: 20180702
  Transmission Date: 20181010
  Serious: No
  Sender: FDA-Public Use
  Company Number: PHEH2018US018872

PATIENT
  Sex: Male

DRUGS (1)
  1. HYDROCORTISONE. [Suspect]
     Active Substance: HYDROCORTISONE
     Indication: DERMATITIS
     Dosage: UNK (2.5 PERCENT 1LB)
     Route: 065

REACTIONS (3)
  - Wound secretion [Unknown]
  - Dermatitis [Unknown]
  - Pain in extremity [Unknown]
